FAERS Safety Report 8876456 (Version 1)
Quarter: 2012Q4

REPORT INFORMATION
  Report Type: 
  Country: GB (occurrence: GB)
  Receive Date: 20121031
  Receipt Date: 20121031
  Transmission Date: 20130627
  Serious: Yes (Other)
  Sender: FDA-Public Use
  Company Number: GB-ACCORD-015052

PATIENT
  Age: 71 Year
  Sex: Male

DRUGS (5)
  1. CAPECITABINE [Concomitant]
     Indication: CANCER
     Route: 048
     Dates: start: 20070822, end: 20080102
  2. FLUOROURACIL [Suspect]
     Indication: METASTATIC COLORECTAL CANCER
     Dosage: Form: Unknown
     Route: 065
  3. ELOXATIN [Suspect]
     Indication: METASTATIC COLORECTAL CANCER
     Dosage: Form:Unknown
     Route: 042
     Dates: start: 20070822, end: 20071219
  4. FOLINIC ACID [Suspect]
     Indication: METASTATIC COLORECTAL CANCER
     Dosage: form: Unknown
     Route: 065
  5. IRINOTECAN HYDROCHLORIDE [Suspect]
     Indication: METASTATIC COLORECTAL CANCER
     Dosage: Form: Unknown
     Route: 065

REACTIONS (1)
  - Neurotoxicity [Recovered/Resolved]
